FAERS Safety Report 4801109-0 (Version None)
Quarter: 2005Q4

REPORT INFORMATION
  Report Type: 
  Country: None (occurrence: None)
  Receive Date: 20051011
  Receipt Date: 20050513
  Transmission Date: 20060501
  Serious: Yes (Other)
  Sender: FDA-Public Use
  Company Number: 805#1#2005-00043

PATIENT
  Age: 1 Day
  Sex: Male

DRUGS (3)
  1. ALPROSTADIL [Suspect]
     Indication: HEART DISEASE CONGENITAL
     Dosage: 15 NG/KG/MIN INTRAVENOUS DRIP
     Route: 041
     Dates: start: 20041027, end: 20041028
  2. AMINOPHYLLIN [Concomitant]
  3. FLOMOXEF-SODIUM (FLOMOXEF SODIUM) [Concomitant]

REACTIONS (2)
  - APNOEIC ATTACK [None]
  - DRUG EFFECT DECREASED [None]
